FAERS Safety Report 25221142 (Version 1)
Quarter: 2025Q2

REPORT INFORMATION
  Report Type: Spontaneous
  Country: US (occurrence: US)
  Receive Date: 20250421
  Receipt Date: 20250421
  Transmission Date: 20250717
  Serious: No
  Sender: KYOWA
  Company Number: US-KYOWAKIRIN-2025KK007036

PATIENT

DRUGS (1)
  1. CRYSVITA [Suspect]
     Active Substance: BUROSUMAB-TWZA
     Indication: Product used for unknown indication
     Dosage: 90 MG, 1X/MONTH
     Route: 065

REACTIONS (4)
  - Pain [Unknown]
  - Insomnia [Unknown]
  - Self-medication [Unknown]
  - Therapeutic response shortened [Unknown]
